FAERS Safety Report 8798218 (Version 1)
Quarter: 2012Q4

REPORT INFORMATION
  Report Type: Spontaneous
  Country: US (occurrence: None)
  Receive Date: 20120917
  Receipt Date: 20120917
  Transmission Date: 20130627
  Serious: Yes (Disabling)
  Sender: FDA-Public Use
  Company Number: None

PATIENT
  Age: 45 Year
  Sex: Male
  Weight: 95.26 kg

DRUGS (1)
  1. PREDNISONE [Suspect]
     Indication: BACK PAIN
     Dates: start: 20070808, end: 20070908

REACTIONS (1)
  - Osteonecrosis [None]
